FAERS Safety Report 22521414 (Version 1)
Quarter: 2023Q2

REPORT INFORMATION
  Report Type: Spontaneous
  Country: US (occurrence: None)
  Receive Date: 20230605
  Receipt Date: 20230605
  Transmission Date: 20230721
  Serious: No
  Sender: FDA-Public Use
  Company Number: None

PATIENT
  Age: 51 Year
  Sex: Female
  Weight: 62.1 kg

DRUGS (1)
  1. METHYLPREDNISOLONE [Suspect]
     Active Substance: METHYLPREDNISOLONE
     Indication: Sciatica
     Dosage: OTHER QUANTITY : 6 TABLET(S);?FREQUENCY : DAILY;?
     Route: 048
     Dates: start: 20230604, end: 20230605

REACTIONS (3)
  - Abnormal faeces [None]
  - Abdominal pain upper [None]
  - Faeces discoloured [None]

NARRATIVE: CASE EVENT DATE: 20230604
